FAERS Safety Report 7969997-7 (Version None)
Quarter: 2011Q4

REPORT INFORMATION
  Report Type: 
  Country: None (occurrence: None)
  Receive Date: 20111212
  Receipt Date: 20111201
  Transmission Date: 20120403
  Serious: Yes (Hospitalization, Other)
  Sender: FDA-Public Use
  Company Number: BR-US-EMD SERONO, INC.-7053537

PATIENT
  Sex: Male

DRUGS (4)
  1. AZATIOPRINE [Concomitant]
  2. REBIF [Suspect]
     Indication: RELAPSING-REMITTING MULTIPLE SCLEROSIS
     Dates: start: 20081122, end: 20110301
  3. REBIF [Suspect]
     Dates: start: 20110301
  4. CORTICOSTEROIDS [Concomitant]

REACTIONS (5)
  - MULTIPLE SCLEROSIS RELAPSE [None]
  - BALANCE DISORDER [None]
  - COORDINATION ABNORMAL [None]
  - CATARACT [None]
  - DYSURIA [None]
